FAERS Safety Report 15539201 (Version 3)
Quarter: 2019Q1

REPORT INFORMATION
  Report Type: Spontaneous
  Country: US (occurrence: US)
  Receive Date: 20181022
  Receipt Date: 20190327
  Transmission Date: 20190417
  Serious: No
  Sender: FDA-Public Use
  Company Number: US-ACTELION-A-NJ2018-179571

PATIENT
  Age: 74 Year
  Sex: Female

DRUGS (32)
  1. FEXOFENADINE [Concomitant]
     Active Substance: FEXOFENADINE\FEXOFENADINE HYDROCHLORIDE
  2. FOLIC ACID. [Concomitant]
     Active Substance: FOLIC ACID
  3. HYDROCODONE BITARTRATE AND ACETAMINOPHEN [Concomitant]
     Active Substance: ACETAMINOPHEN\HYDROCODONE BITARTRATE
  4. METOPROLOL. [Concomitant]
     Active Substance: METOPROLOL
  5. NIFEDIPINE. [Concomitant]
     Active Substance: NIFEDIPINE
  6. PROPOXYPHENE AND ACETAMINOPHEN [Concomitant]
     Active Substance: ACETAMINOPHEN\PROPOXYPHENE NAPSYLATE
  7. ROSUVASTATIN. [Concomitant]
     Active Substance: ROSUVASTATIN
  8. WARFARIN [Concomitant]
     Active Substance: WARFARIN
  9. TRIAMCINOLONE [Concomitant]
     Active Substance: TRIAMCINOLONE
     Dosage: OINTMENT 1%
  10. FLUOCINOLONE ACET [Concomitant]
  11. TORSEMIDE. [Concomitant]
     Active Substance: TORSEMIDE
  12. VITAMIN D [Concomitant]
     Active Substance: CHOLECALCIFEROL
  13. HUMIRA [Concomitant]
     Active Substance: ADALIMUMAB
  14. TRAMADOL. [Concomitant]
     Active Substance: TRAMADOL
  15. AMITIZA [Concomitant]
     Active Substance: LUBIPROSTONE
  16. LEXAPRO [Concomitant]
     Active Substance: ESCITALOPRAM OXALATE
  17. NIFEDIAC CC [Concomitant]
     Active Substance: NIFEDIPINE
  18. VENLAFAXINE [Concomitant]
     Active Substance: VENLAFAXINE HYDROCHLORIDE
  19. CEPHALEXIN. [Concomitant]
     Active Substance: CEPHALEXIN
  20. CLOBETASOL [Concomitant]
     Active Substance: CLOBETASOL
  21. CLOPIDOGREL [Concomitant]
     Active Substance: CLOPIDOGREL BISULFATE
  22. METHOTREXATE. [Concomitant]
     Active Substance: METHOTREXATE
  23. PANTOPRAZOLE [Concomitant]
     Active Substance: PANTOPRAZOLE
  24. OXYGEN. [Concomitant]
     Active Substance: OXYGEN
  25. AMLODIPINE [Concomitant]
     Active Substance: AMLODIPINE BESYLATE
  26. KETOROLAC [Concomitant]
     Active Substance: KETOROLAC\KETOROLAC TROMETHAMINE
  27. KRISTALOSE [Concomitant]
     Active Substance: LACTULOSE
  28. TRAZODONE [Concomitant]
     Active Substance: TRAZODONE HYDROCHLORIDE
  29. OPSUMIT [Suspect]
     Active Substance: MACITENTAN
     Indication: PULMONARY ARTERIAL HYPERTENSION
     Dosage: 10 MG, QD
     Route: 048
  30. METOCLOPRAM [Concomitant]
     Active Substance: METOCLOPRAMIDE
  31. OMEPRAZOLE. [Concomitant]
     Active Substance: OMEPRAZOLE
  32. TRIAMCINOLONE [Concomitant]
     Active Substance: TRIAMCINOLONE

REACTIONS (7)
  - Oropharyngeal pain [Unknown]
  - Hypotension [Unknown]
  - Malaise [Unknown]
  - Dizziness [Unknown]
  - Gastrooesophageal reflux disease [Unknown]
  - Dyspnoea [Not Recovered/Not Resolved]
  - Product dose omission [Not Recovered/Not Resolved]

NARRATIVE: CASE EVENT DATE: 20180910
